FAERS Safety Report 7342815-6 (Version None)
Quarter: 2011Q1

REPORT INFORMATION
  Report Type: 
  Country: None (occurrence: None)
  Receive Date: 20110228
  Receipt Date: 20110216
  Transmission Date: 20110831
  Serious: Yes (Other)
  Sender: FDA-Public Use
  Company Number: AEUSA200100031

PATIENT
  Age: 71 Year
  Sex: Male
  Weight: 83.9154 kg

DRUGS (18)
  1. AMITRIPTYLINE [Concomitant]
  2. INDOMETHACIN [Concomitant]
  3. ASCORBIC ACID [Concomitant]
  4. MULTI-VITAMINS [Concomitant]
  5. NITROGLYCERIN [Concomitant]
  6. TORADOL [Concomitant]
  7. ATENOLOL [Concomitant]
  8. PROLASTIN-C [Suspect]
     Indication: ALPHA-1 ANTI-TRYPSIN DEFICIENCY
     Dosage: QOW;IV
     Route: 042
     Dates: start: 20100301, end: 20110214
  9. FOLIC ACID [Concomitant]
  10. LIPITOR [Concomitant]
  11. PROLASTIN [Suspect]
     Indication: ALPHA-1 ANTI-TRYPSIN DEFICIENCY
     Dosage: 1080 MG;QOW;IV
     Route: 042
     Dates: start: 20010101
  12. SPIRIVA [Concomitant]
  13. ENTERIC ASPIRIN [Concomitant]
  14. POTASSIUM CITRATE [Concomitant]
  15. DETROL /01350201/ [Concomitant]
  16. NEXIUM /0149303/ [Concomitant]
  17. DICYCLOMINE [Concomitant]
  18. ALLOPURINOL [Concomitant]

REACTIONS (18)
  - BLINDNESS TRANSIENT [None]
  - OEDEMA MOUTH [None]
  - LIP SWELLING [None]
  - VOMITING [None]
  - VISION BLURRED [None]
  - INJECTION SITE ERYTHEMA [None]
  - DYSPNOEA [None]
  - BLOOD PRESSURE INCREASED [None]
  - VENTRICULAR EXTRASYSTOLES [None]
  - DIZZINESS [None]
  - ABDOMINAL PAIN [None]
  - CHILLS [None]
  - TINNITUS [None]
  - NAUSEA [None]
  - DIARRHOEA [None]
  - FATIGUE [None]
  - CHEST PAIN [None]
  - RASH MACULAR [None]
